FAERS Safety Report 15395632 (Version 1)
Quarter: 2018Q3

REPORT INFORMATION
  Report Type: Spontaneous
  Country: US (occurrence: US)
  Receive Date: 20180912
  Receipt Date: 20180912
  Transmission Date: 20181010
  Serious: Yes (Hospitalization)
  Sender: FDA-Public Use
  Company Number: None

PATIENT
  Sex: Female

DRUGS (21)
  1. HYDROXYCHLOR [Concomitant]
     Active Substance: HYDROXYCHLOROQUINE
  2. LYRICA [Concomitant]
     Active Substance: PREGABALIN
  3. MEDROL [Concomitant]
     Active Substance: METHYLPREDNISOLONE
  4. BIOTIN [Concomitant]
     Active Substance: BIOTIN
  5. EVOXAC [Concomitant]
     Active Substance: CEVIMELINE HYDROCHLORIDE
  6. VITAMIN D3 [Concomitant]
     Active Substance: CHOLECALCIFEROL
  7. CYCLOBENZAPR [Concomitant]
     Active Substance: CYCLOBENZAPRINE
  8. LIPITOR [Concomitant]
     Active Substance: ATORVASTATIN CALCIUM
  9. CALCIUM [Concomitant]
     Active Substance: CALCIUM
  10. HYDROCHLOROT [Concomitant]
     Active Substance: HYDROCHLOROTHIAZIDE
  11. ASPIRIN. [Concomitant]
     Active Substance: ASPIRIN
  12. CRANBERRY. [Concomitant]
     Active Substance: CRANBERRY
  13. GLIPIZIDE. [Concomitant]
     Active Substance: GLIPIZIDE
  14. TRAMADOL. [Concomitant]
     Active Substance: TRAMADOL
  15. CYMBALTA [Concomitant]
     Active Substance: DULOXETINE HYDROCHLORIDE
  16. BENLYSTA [Suspect]
     Active Substance: BELIMUMAB
     Indication: SYSTEMIC LUPUS ERYTHEMATOSUS
     Route: 058
     Dates: start: 20180130
  17. ACIDOPHILUS [Concomitant]
     Active Substance: LACTOBACILLUS ACIDOPHILUS
  18. GARLIC OIL [Concomitant]
     Active Substance: GARLIC OIL
  19. LEFLUNOMIDE. [Concomitant]
     Active Substance: LEFLUNOMIDE
  20. MULTI?VITAMIN [Concomitant]
     Active Substance: .ALPHA.-TOCOPHEROL ACETATE, DL-\ASCORBIC ACID\CYANOCOBALAMIN\FLUORIDE ION\FOLIC ACID\NIACIN\PYRIDOXINE\RIBOFLAVIN\THIAMINE\VITAMIN A\VITAMIN D
  21. NORVASC [Concomitant]
     Active Substance: AMLODIPINE BESYLATE

REACTIONS (1)
  - Drug dose omission [None]
